FAERS Safety Report 21826056 (Version 1)
Quarter: 2023Q1

REPORT INFORMATION
  Report Type: Report from Study
  Country: US (occurrence: US)
  Receive Date: 20230106
  Receipt Date: 20230106
  Transmission Date: 20230418
  Serious: No
  Sender: FDA-Public Use
  Company Number: US-ABBVIE-4222606

PATIENT
  Sex: Male

DRUGS (2)
  1. SKYRIZI [Suspect]
     Active Substance: RISANKIZUMAB-RZAA
     Indication: Psoriasis
     Dosage: WEEK 4, FORM STRENGTH: 150 MILLIGRAM.?EVENT ONSET DATE 2022 FOR REDNESS, PAIN, SMALL ROUND RASHES...
     Route: 058
     Dates: start: 20221019
  2. SKYRIZI [Suspect]
     Active Substance: RISANKIZUMAB-RZAA
     Indication: Rheumatoid arthritis
     Dosage: WEEK ZERO, FORM STRENGTH: 150 MILLIGRAM.
     Route: 058
     Dates: start: 20220921, end: 20220921

REACTIONS (4)
  - Rash papular [Unknown]
  - Erythema [Unknown]
  - Pain [Unknown]
  - Drug ineffective [Unknown]
